FAERS Safety Report 19169769 (Version 1)
Quarter: 2021Q2

REPORT INFORMATION
  Report Type: Spontaneous
  Country: US (occurrence: US)
  Receive Date: 20210422
  Receipt Date: 20210422
  Transmission Date: 20210717
  Serious: No
  Sender: FDA-Public Use
  Company Number: US-ASTELLAS-2020US045253

PATIENT
  Age: 93 Year
  Sex: Male

DRUGS (4)
  1. LEXISCAN [Suspect]
     Active Substance: REGADENOSON
     Indication: PRODUCT USED FOR UNKNOWN INDICATION
     Dosage: 0.4 MG/5 ML, UNKNOWN FREQ. (PRE FILLED SYRINGE)
     Route: 065
     Dates: start: 20201218, end: 20201218
  2. LEXISCAN [Suspect]
     Active Substance: REGADENOSON
     Indication: PRODUCT USED FOR UNKNOWN INDICATION
     Dosage: 0.4 MG/5 ML, UNKNOWN FREQ. (PRE FILLED SYRINGE)
     Route: 065
     Dates: start: 20201218, end: 20201218
  3. LEXISCAN [Suspect]
     Active Substance: REGADENOSON
     Indication: PRODUCT USED FOR UNKNOWN INDICATION
     Dosage: 0.4 MG/5 ML, UNKNOWN FREQ. (PRE FILLED SYRINGE)
     Route: 065
     Dates: start: 20201218, end: 20201218
  4. LEXISCAN [Suspect]
     Active Substance: REGADENOSON
     Indication: PRODUCT USED FOR UNKNOWN INDICATION
     Dosage: 0.4 MG/5 ML, UNKNOWN FREQ. (PRE FILLED SYRINGE)
     Route: 065
     Dates: start: 20201218, end: 20201218

REACTIONS (3)
  - Injection site extravasation [Unknown]
  - Incorrect dose administered [Unknown]
  - Wrong technique in product usage process [Unknown]

NARRATIVE: CASE EVENT DATE: 20201218
